FAERS Safety Report 23051421 (Version 1)
Quarter: 2023Q4

REPORT INFORMATION
  Report Type: Spontaneous
  Country: US (occurrence: None)
  Receive Date: 20231009
  Receipt Date: 20231009
  Transmission Date: 20240110
  Serious: Yes (Hospitalization, Other)
  Sender: FDA-Public Use
  Company Number: None

PATIENT
  Age: 63 Year
  Sex: Female
  Weight: 90 kg

DRUGS (2)
  1. SOLU-MEDROL [Suspect]
     Active Substance: METHYLPREDNISOLONE SODIUM SUCCINATE
     Indication: COVID-19
     Dosage: OTHER QUANTITY : 1 VIAL;?
     Dates: start: 20220903
  2. PAXLOVID [Concomitant]
     Active Substance: NIRMATRELVIR\RITONAVIR

REACTIONS (6)
  - Throat tightness [None]
  - Pharyngeal swelling [None]
  - Blood pressure decreased [None]
  - Hyperhidrosis [None]
  - Respiration abnormal [None]
  - Feeling abnormal [None]

NARRATIVE: CASE EVENT DATE: 20220903
